FAERS Safety Report 19312312 (Version 1)
Quarter: 2021Q2

REPORT INFORMATION
  Report Type: Spontaneous
  Country: US (occurrence: US)
  Receive Date: 20210527
  Receipt Date: 20210527
  Transmission Date: 20210717
  Serious: Yes (Other)
  Sender: FDA-Public Use
  Company Number: US-SA-2021SA172507

PATIENT
  Age: 60 Year
  Sex: Female

DRUGS (1)
  1. ZANTAC [Suspect]
     Active Substance: RANITIDINE HYDROCHLORIDE
     Indication: INTESTINAL ULCER
     Dosage: UNK UNK, QD
     Dates: start: 199501, end: 200901

REACTIONS (3)
  - Oesophageal carcinoma [Recovering/Resolving]
  - Neoplasm malignant [Unknown]
  - Throat cancer [Recovering/Resolving]

NARRATIVE: CASE EVENT DATE: 20120101
